FAERS Safety Report 7434702-X (Version None)
Quarter: 2011Q2

REPORT INFORMATION
  Report Type: 
  Country: None (occurrence: None)
  Receive Date: 20110425
  Receipt Date: 20070706
  Transmission Date: 20111010
  Serious: Yes (Death, Hospitalization, Disabling, Other)
  Sender: FDA-Public Use
  Company Number: US-BAYER-200712160BWH

PATIENT
  Age: 7 Day
  Sex: Female
  Weight: 3.52 kg

DRUGS (44)
  1. TRASYLOL [Suspect]
     Dosage: 12.5 ML LOADING DOSE
     Dates: start: 20040528, end: 20040528
  2. AMPICILLIN [Concomitant]
     Dosage: UNK
  3. PROSTAGLANDINS [Concomitant]
     Dosage: 0.05 MCG/KG/MINUTE
     Route: 042
  4. FUROSEMIDE [Concomitant]
     Dosage: 2 MG, UNK
     Route: 042
     Dates: start: 20040528
  5. KEFZOL [Concomitant]
     Dosage: 1 G, UNK
     Route: 042
     Dates: start: 20040528
  6. TRASYLOL [Suspect]
     Dosage: 12.5 ML OVER 30 MIN TEST DOSE
     Route: 042
     Dates: start: 20040528, end: 20040528
  7. PROTAMINE SULFATE [Concomitant]
     Dosage: 5-15 MG
     Route: 042
     Dates: start: 20040528
  8. HEPARIN [Concomitant]
     Dosage: 1500 U, UNK
     Route: 042
     Dates: start: 20040528
  9. KETAMINE HCL [Concomitant]
     Dosage: 10 MG, UNK
     Route: 042
     Dates: start: 20040528
  10. ACETAMINOPHEN [Concomitant]
     Dosage: 50 ML, UNK
  11. POTASSIUM CHLORIDE [Concomitant]
     Dosage: 1.5 MEQ, UNK
     Route: 042
  12. CRYOPRECIPITATES [Concomitant]
     Dosage: 3 U, UNK
     Route: 042
     Dates: start: 20040528
  13. NITROGLYCERIN [Concomitant]
     Dosage: 0.5 MG/KG/MINUTE
     Route: 041
     Dates: start: 20040528
  14. FENTANYL [Concomitant]
     Dosage: 25 MG, UNK
     Route: 042
     Dates: start: 20040528
  15. CEFUROXIME [Concomitant]
     Dosage: UNK
     Route: 042
     Dates: start: 20040528
  16. AMPICILLIN [Concomitant]
     Dosage: UNK
  17. HEPARIN [Concomitant]
     Dosage: 1500 U, UNK
     Route: 042
     Dates: start: 20040528
  18. CRYOPRECIPITATES [Concomitant]
     Dosage: 3 U, UNK
     Route: 042
     Dates: start: 20040528
  19. RED BLOOD CELLS [Concomitant]
     Dosage: 4 U, UNK
     Route: 042
     Dates: start: 20040528
  20. RED BLOOD CELLS [Concomitant]
     Dosage: 4 U, UNK
     Route: 042
     Dates: start: 20040528
  21. AMLODIPINE [Concomitant]
     Dosage: UNK
     Route: 041
     Dates: start: 20040528
  22. DOPAMINE [Concomitant]
     Dosage: 1.5 MCG/KG/MINUTE
     Route: 041
     Dates: start: 20040528
  23. TRASYLOL [Suspect]
     Dosage: 12.5 ML LOADING DOSE
     Dates: start: 20040528, end: 20040528
  24. GENTAMICIN [Concomitant]
     Dosage: 12 MG, UNK
     Route: 042
     Dates: start: 20040522
  25. DOPAMINE [Concomitant]
     Dosage: 3 MCG/KG/MINUTE
     Route: 041
     Dates: start: 20040528
  26. DOPAMINE [Concomitant]
     Dosage: 1.5 MCG/KG/MINUTE
     Route: 041
     Dates: start: 20040528
  27. NITROGLYCERIN [Concomitant]
     Dosage: 0.5 MG/KG/MINUTE
     Route: 041
     Dates: start: 20040528
  28. ATROPINE [Concomitant]
     Dosage: 125 MEQ, UNK
     Route: 042
     Dates: start: 20040528
  29. GENTAMICIN [Concomitant]
     Dosage: 12 MG, UNK
     Route: 042
     Dates: start: 20040522
  30. ALBUMIN (HUMAN) [Concomitant]
     Dosage: 100 ML, UNK
     Route: 042
     Dates: start: 20040528
  31. FENTANYL [Concomitant]
     Dosage: 25 MG, UNK
     Route: 042
     Dates: start: 20040528
  32. ACETAMINOPHEN [Concomitant]
     Dosage: 50 ML, UNK
  33. POTASSIUM CHLORIDE [Concomitant]
     Dosage: 1.5 MEQ, UNK
     Route: 042
  34. PROSTAGLANDINS [Concomitant]
     Dosage: 0.05 MCG/KG/MINUTE
     Route: 042
  35. KEFZOL [Concomitant]
     Dosage: 1 G, UNK
     Route: 042
     Dates: start: 20040528
  36. ALBUMIN (HUMAN) [Concomitant]
     Dosage: 100 ML, UNK
     Route: 042
     Dates: start: 20040528
  37. DOPAMINE [Concomitant]
     Dosage: 3 MCG/KG/MINUTE
     Route: 041
     Dates: start: 20040528
  38. KETAMINE HCL [Concomitant]
     Dosage: 10 MG, UNK
     Route: 042
     Dates: start: 20040528
  39. TRASYLOL [Suspect]
     Indication: NORWOOD PROCEDURE
     Dosage: 12.5 ML OVER 30 MIN TEST DOSE
     Route: 042
     Dates: start: 20040528, end: 20040528
  40. FUROSEMIDE [Concomitant]
     Dosage: 2 MG, UNK
     Route: 042
     Dates: start: 20040528
  41. PROTAMINE SULFATE [Concomitant]
     Dosage: 5-15 MG
     Route: 042
     Dates: start: 20040528
  42. AMLODIPINE [Concomitant]
     Dosage: UNK
     Route: 041
     Dates: start: 20040528
  43. ATROPINE [Concomitant]
     Dosage: 125 MEQ, UNK
     Route: 042
     Dates: start: 20040528
  44. CEFUROXIME [Concomitant]
     Dosage: UNK
     Route: 042
     Dates: start: 20040528

REACTIONS (9)
  - DEPRESSION [None]
  - METABOLIC ACIDOSIS [None]
  - ANXIETY [None]
  - PAIN [None]
  - RENAL FAILURE [None]
  - INJURY [None]
  - ANHEDONIA [None]
  - UNEVALUABLE EVENT [None]
  - FEAR [None]
